FAERS Safety Report 24100038 (Version 2)
Quarter: 2024Q3

REPORT INFORMATION
  Report Type: Spontaneous
  Country: US (occurrence: US)
  Receive Date: 20240717
  Receipt Date: 20240723
  Transmission Date: 20241017
  Serious: No
  Sender: NOVO NORDISK
  Company Number: US-NOVOPROD-1200135

PATIENT
  Sex: Female

DRUGS (4)
  1. OZEMPIC [Suspect]
     Active Substance: SEMAGLUTIDE
     Indication: Insulin resistance
  2. OZEMPIC [Suspect]
     Active Substance: SEMAGLUTIDE
     Indication: Metabolic disorder
     Dosage: UNK
     Route: 058
  3. RYBELSUS [Suspect]
     Active Substance: SEMAGLUTIDE
     Indication: Insulin resistance
  4. RYBELSUS [Suspect]
     Active Substance: SEMAGLUTIDE
     Indication: Metabolic disorder
     Dosage: UNK
     Route: 048

REACTIONS (2)
  - Feeling abnormal [Unknown]
  - Off label use [Unknown]
